FAERS Safety Report 25855729 (Version 1)
Quarter: 2025Q3

REPORT INFORMATION
  Report Type: Spontaneous
  Country: US (occurrence: US)
  Receive Date: 20250928
  Receipt Date: 20250928
  Transmission Date: 20251021
  Serious: No
  Sender: SANOFI AVENTIS
  Company Number: US-SA-2025SA288519

PATIENT
  Age: 24 Year
  Sex: Female

DRUGS (4)
  1. DUPIXENT [Suspect]
     Active Substance: DUPILUMAB
     Indication: Eosinophilic oesophagitis
     Dosage: 300 MG, QW
     Route: 058
     Dates: start: 20241120
  2. AZELASTINE [Concomitant]
     Active Substance: AZELASTINE
  3. MOMETASONE FUROATE [Concomitant]
     Active Substance: MOMETASONE FUROATE
  4. ZYRTEC [Concomitant]
     Active Substance: CETIRIZINE HYDROCHLORIDE

REACTIONS (3)
  - Eye pruritus [Unknown]
  - Dry eye [Unknown]
  - Product dose omission in error [Unknown]
